FAERS Safety Report 7790170-X (Version None)
Quarter: 2011Q3

REPORT INFORMATION
  Report Type: 
  Country: None (occurrence: None)
  Receive Date: 20110930
  Receipt Date: 20110105
  Transmission Date: 20111222
  Serious: No
  Sender: FDA-Public Use
  Company Number: US-ASTRAZENECA-2007UW21663

PATIENT
  Age: 64 Year
  Sex: Female

DRUGS (1)
  1. ARIMIDEX [Suspect]
     Indication: BREAST CANCER
     Route: 048
     Dates: start: 20060101

REACTIONS (6)
  - PAIN IN EXTREMITY [None]
  - PAIN [None]
  - CARPAL TUNNEL SYNDROME [None]
  - MUSCULOSKELETAL STIFFNESS [None]
  - DRUG DOSE OMISSION [None]
  - PARAESTHESIA [None]
